FAERS Safety Report 8808905 (Version 1)
Quarter: 2012Q4

REPORT INFORMATION
  Report Type: 
  Country: ES (occurrence: ES)
  Receive Date: 20120926
  Receipt Date: 20120926
  Transmission Date: 20130627
  Serious: Yes (Death)
  Sender: FDA-Public Use
  Company Number: ES-SHIRE-SPV1-2012-00861

PATIENT
  Age: 4 Year
  Sex: Male

DRUGS (3)
  1. ELAPRASE [Suspect]
     Indication: MUCOPOLYSACCHARIDOSIS II
     Dosage: UNK UNK, 1x/week
     Route: 041
     Dates: start: 20110523
  2. PARACETAMOL [Concomitant]
     Indication: PREMEDICATION
     Dosage: UNK, 1x/week
     Route: 048
  3. POLARAMINE [Concomitant]
     Indication: PREMEDICATION
     Dosage: UNK, 1x/week
     Route: 048

REACTIONS (1)
  - Sudden death [Fatal]
